FAERS Safety Report 9554181 (Version 2)
Quarter: 2013Q3

REPORT INFORMATION
  Report Type: Report from Study
  Country: NL (occurrence: NL)
  Receive Date: 20130925
  Receipt Date: 20130925
  Transmission Date: 20140515
  Serious: Yes (Death, Life-Threatening, Hospitalization)
  Sender: FDA-Public Use
  Company Number: NL-SANOFI-AVENTIS-CLOF-1002760

PATIENT
  Age: 25 Year
  Sex: Male
  Weight: 62 kg

DRUGS (8)
  1. CLOFARABINE [Suspect]
     Indication: ACUTE LYMPHOCYTIC LEUKAEMIA
     Dosage: 65 MG, QD
     Route: 042
     Dates: start: 20120816, end: 20120820
  2. CLOFARABINE [Suspect]
     Indication: ACUTE LYMPHOCYTIC LEUKAEMIA
     Dosage: 65 MG, QD
     Route: 042
     Dates: start: 20120816, end: 20120820
  3. CLOFARABINE [Suspect]
     Indication: ACUTE LYMPHOCYTIC LEUKAEMIA
     Dosage: 64 MG, QD
     Route: 042
     Dates: start: 20121210, end: 20121214
  4. CLOFARABINE [Suspect]
     Indication: ACUTE LYMPHOCYTIC LEUKAEMIA
     Dosage: 64 MG, QD
     Route: 042
     Dates: start: 20121210, end: 20121214
  5. CYCLOPHOSPHAMIDE [Suspect]
     Indication: ACUTE LYMPHOCYTIC LEUKAEMIA
     Dosage: 5160 MG, UNK
     Route: 042
     Dates: start: 20120330, end: 20120331
  6. CYCLOPHOSPHAMIDE [Suspect]
     Indication: ACUTE LYMPHOCYTIC LEUKAEMIA
     Dosage: 5160 MG, UNK
     Route: 042
     Dates: start: 20120330, end: 20120331
  7. SULFAMETHOXAZOLE/TRIMETHOPRIM [Concomitant]
     Indication: ANTIBIOTIC PROPHYLAXIS
     Dosage: 480 MG, UNK
     Route: 048
     Dates: start: 20120914
  8. FLUCONAZOLE [Concomitant]
     Indication: ANTIFUNGAL PROPHYLAXIS
     Dosage: 400 MG, UNK
     Route: 048
     Dates: start: 20130329

REACTIONS (3)
  - Acute graft versus host disease in intestine [Fatal]
  - Nephropathy toxic [Recovered/Resolved]
  - Radiation pneumonitis [Recovered/Resolved]
